FAERS Safety Report 5054587-9 (Version None)
Quarter: 2006Q2

REPORT INFORMATION
  Report Type: 
  Country: None (occurrence: None)
  Receive Date: 20060616
  Receipt Date: 20060419
  Transmission Date: 20061013
  Serious: No
  Sender: FDA-Public Use
  Company Number: 2006US000879

PATIENT
  Age: 68 Year
  Sex: Female

DRUGS (7)
  1. VESICARE [Suspect]
     Indication: URINARY INCONTINENCE
     Dosage: 5 MG, ORAL
     Route: 048
  2. SYNTHROID [Concomitant]
  3. BENICAR [Concomitant]
  4. EVISTA [Concomitant]
  5. NEXIUM [Concomitant]
  6. MOBIC [Concomitant]
  7. VITAMINS [Concomitant]

REACTIONS (3)
  - ARTHRALGIA [None]
  - JOINT SWELLING [None]
  - WEIGHT INCREASED [None]
